FAERS Safety Report 14484504 (Version 1)
Quarter: 2018Q1

REPORT INFORMATION
  Report Type: Spontaneous
  Country: US (occurrence: US)
  Receive Date: 20180202
  Receipt Date: 20180202
  Transmission Date: 20180509
  Serious: Yes (Other)
  Sender: FDA-Public Use
  Company Number: None

PATIENT
  Age: 60 Year
  Sex: Female
  Weight: 68.1 kg

DRUGS (5)
  1. GABAPENTIN. [Concomitant]
     Active Substance: GABAPENTIN
  2. CEFEPIME [Suspect]
     Active Substance: CEFEPIME HYDROCHLORIDE
     Indication: NEUTROPENIA
     Dosage: ?          OTHER FREQUENCY:Q8H;OTHER ROUTE:IV PUSH OVER 5 MINUTES (IN 10 ML SWFI)?
     Dates: start: 20171104, end: 20171109
  3. CEFEPIME [Suspect]
     Active Substance: CEFEPIME HYDROCHLORIDE
     Indication: HYPOTENSION
     Dosage: ?          OTHER FREQUENCY:Q8H;OTHER ROUTE:IV PUSH OVER 5 MINUTES (IN 10 ML SWFI)?
     Dates: start: 20171104, end: 20171109
  4. PANTOPRAZOLE [Suspect]
     Active Substance: PANTOPRAZOLE
  5. FLUCONAZOLE. [Concomitant]
     Active Substance: FLUCONAZOLE

REACTIONS (1)
  - Chills [None]

NARRATIVE: CASE EVENT DATE: 20171105
